FAERS Safety Report 10077166 (Version 1)
Quarter: 2014Q2

REPORT INFORMATION
  Report Type: Spontaneous
  Country: FR (occurrence: FR)
  Receive Date: 20140414
  Receipt Date: 20140414
  Transmission Date: 20141212
  Serious: Yes (Hospitalization)
  Sender: FDA-Public Use
  Company Number: PHHY2014FR041616

PATIENT
  Sex: Male

DRUGS (14)
  1. CUBICIN [Suspect]
     Dosage: UNK
     Route: 042
     Dates: start: 20140202, end: 20140312
  2. RIFAMPICIN [Suspect]
     Dosage: UNK
     Route: 048
     Dates: start: 20140202, end: 20140312
  3. ALLOPURINOL [Concomitant]
  4. MACROGOL [Concomitant]
  5. ALFUZOSINE [Concomitant]
  6. PERMIXON [Concomitant]
  7. OXYCODONE [Concomitant]
  8. FUROSEMIDE [Concomitant]
  9. OXAZEPAM [Concomitant]
  10. PARACETAMOL [Concomitant]
  11. DIFFU K [Concomitant]
  12. PERINDOPRIL [Concomitant]
     Dosage: UNK
     Dates: start: 20140114
  13. ASPEGIC [Concomitant]
     Dosage: UNK
     Dates: start: 20140114
  14. FRAGMINE [Concomitant]
     Dosage: UNK
     Dates: start: 20140202

REACTIONS (1)
  - Eosinophilic pneumonia [Recovering/Resolving]
